FAERS Safety Report 25943766 (Version 2)
Quarter: 2025Q4

REPORT INFORMATION
  Report Type: Spontaneous
  Country: GB (occurrence: GB)
  Receive Date: 20251021
  Receipt Date: 20251030
  Transmission Date: 20260117
  Serious: Yes (Life-Threatening, Hospitalization, Other)
  Sender: AUROBINDO
  Company Number: GB-MLMSERVICE-20251002-PI664307-00029-1

PATIENT
  Age: 45 Year
  Sex: Female

DRUGS (4)
  1. ACETAMINOPHEN [Interacting]
     Active Substance: ACETAMINOPHEN
     Indication: Breast cyst
     Dosage: SPORADIC DOSAGES OF PARACETAMOL ABOUT 1-1.5 GRAMS
     Route: 065
     Dates: start: 2024, end: 2024
  2. ACETAMINOPHEN [Interacting]
     Active Substance: ACETAMINOPHEN
     Indication: Breast pain
  3. FLUCLOXACILLIN [Interacting]
     Active Substance: FLUCLOXACILLIN
     Indication: Infection
     Dosage: 1 GRAM, FOUR TIMES/DAY
     Route: 048
     Dates: start: 20240901, end: 20240901
  4. CANNABIS SATIVA SUBSP. INDICA TOP [Interacting]
     Active Substance: CANNABIS SATIVA SUBSP. INDICA TOP
     Indication: Product used for unknown indication
     Dosage: THREE TO FOUR TIMES A DAY, FOR THE PAST 14 DAYS
     Route: 048
     Dates: start: 20240901, end: 20240915

REACTIONS (2)
  - Drug-induced liver injury [Recovered/Resolved]
  - Potentiating drug interaction [Recovered/Resolved]

NARRATIVE: CASE EVENT DATE: 20241001
